FAERS Safety Report 5531135-8 (Version None)
Quarter: 2007Q4

REPORT INFORMATION
  Report Type: 
  Country: None (occurrence: None)
  Receive Date: 20071130
  Receipt Date: 20071119
  Transmission Date: 20080405
  Serious: Yes (Other)
  Sender: FDA-Public Use
  Company Number: US-PFIZER INC-2007098673

PATIENT
  Sex: Female
  Weight: 81.818 kg

DRUGS (2)
  1. CHANTIX [Suspect]
     Indication: SMOKING CESSATION THERAPY
     Dosage: TEXT:EVERYDAY
  2. NEXIUM [Concomitant]

REACTIONS (4)
  - ANGER [None]
  - CHEST PAIN [None]
  - DRUG INEFFECTIVE [None]
  - WOLFF-PARKINSON-WHITE SYNDROME [None]
